FAERS Safety Report 13935796 (Version 5)
Quarter: 2017Q3

REPORT INFORMATION
  Report Type: Spontaneous
  Country: FR (occurrence: FR)
  Receive Date: 20170905
  Receipt Date: 20170927
  Transmission Date: 20171127
  Serious: Yes (Life-Threatening, Other)
  Sender: FDA-Public Use
  Company Number: FR-JNJFOC-20170900493

PATIENT
  Age: 90 Year
  Sex: Male

DRUGS (1)
  1. DUROGESIC [Suspect]
     Active Substance: FENTANYL
     Indication: BONE PAIN
     Route: 062
     Dates: start: 20170102

REACTIONS (7)
  - Sedation [Unknown]
  - Faecaloma [Recovered/Resolved]
  - Diarrhoea [Unknown]
  - Product quality issue [Unknown]
  - Hypokalaemia [Unknown]
  - Constipation [Unknown]
  - Overdose [Unknown]

NARRATIVE: CASE EVENT DATE: 201705
